FAERS Safety Report 16949683 (Version 3)
Quarter: 2020Q1

REPORT INFORMATION
  Report Type: Report from Study
  Country: IN (occurrence: IN)
  Receive Date: 20191023
  Receipt Date: 20200109
  Transmission Date: 20200409
  Serious: Yes (Other)
  Sender: FDA-Public Use
  Company Number: IN-ROCHE-2439125

PATIENT
  Age: 67 Year
  Sex: Female

DRUGS (1)
  1. ALECENSA [Suspect]
     Active Substance: ALECTINIB HYDROCHLORIDE
     Indication: NON-SMALL CELL LUNG CANCER
     Route: 048
     Dates: start: 20191010

REACTIONS (5)
  - Coordination abnormal [Unknown]
  - Joint range of motion decreased [Unknown]
  - Drug ineffective [Unknown]
  - Oedema peripheral [Unknown]
  - Lymphadenopathy [Unknown]
